FAERS Safety Report 17711673 (Version 3)
Quarter: 2020Q2

REPORT INFORMATION
  Report Type: Spontaneous
  Country: IT (occurrence: IT)
  Receive Date: 20200427
  Receipt Date: 20200508
  Transmission Date: 20200714
  Serious: Yes (Death, Life-Threatening, Other)
  Sender: FDA-Public Use
  Company Number: IT-MACLEODS PHARMACEUTICALS US LTD-MAC2020026276

PATIENT

DRUGS (2)
  1. SILDENAFIL. [Suspect]
     Active Substance: SILDENAFIL
     Indication: PRODUCT USED FOR UNKNOWN INDICATION
     Dosage: 100 MILLIGRAM
     Route: 048
  2. SILDENAFIL. [Suspect]
     Active Substance: SILDENAFIL
     Dosage: 50 MILLIGRAM
     Route: 048

REACTIONS (10)
  - Angina pectoris [Fatal]
  - Aortic thrombosis [Fatal]
  - Aortic dissection [Fatal]
  - Toxicity to various agents [Fatal]
  - Pericardial haemorrhage [Fatal]
  - Cardiac tamponade [Fatal]
  - Left ventricular hypertrophy [Fatal]
  - Pulmonary oedema [Fatal]
  - Drug abuse [Fatal]
  - Circulatory collapse [Fatal]
